FAERS Safety Report 18325042 (Version 3)
Quarter: 2023Q4

REPORT INFORMATION
  Report Type: Spontaneous
  Country: US (occurrence: US)
  Receive Date: 20200929
  Receipt Date: 20231219
  Transmission Date: 20240109
  Serious: No
  Sender: FDA-Public Use
  Company Number: US-PFIZER INC-2020372944

PATIENT
  Age: 72 Year
  Sex: Female

DRUGS (1)
  1. LORBRENA [Suspect]
     Active Substance: LORLATINIB
     Dosage: TAKE ONE TABLET (100 MG) BY MOUTH DAILY.
     Route: 048

REACTIONS (1)
  - Neoplasm progression [Unknown]
